FAERS Safety Report 6915073 (Version 3)
Quarter: 2013Q3

REPORT INFORMATION
  Report Type: Report from Study
  Country: US (occurrence: US)
  Receive Date: 20090220
  Receipt Date: 20130827
  Transmission Date: 20140515
  Serious: Yes (Hospitalization)
  Sender: FDA-Public Use
  Company Number: PHHO2009US00819

PATIENT
  Age: 69 Year
  Sex: Male
  Weight: 112 kg

DRUGS (6)
  1. ALISKIREN [Suspect]
     Indication: CARDIOVASCULAR DISORDER
     Route: 048
     Dates: start: 20081113
  2. METOPROLOL [Suspect]
     Indication: HYPERTENSION
     Dosage: 50 MG, BID
     Dates: start: 1993, end: 20090108
  3. METOPROLOL [Suspect]
     Dosage: 25 MG, QD
     Route: 048
     Dates: start: 20090320
  4. NORVASC [Suspect]
     Indication: HYPERTENSION
     Dosage: 5 MG, QD
     Dates: start: 20080901, end: 20090108
  5. LASIX [Concomitant]
     Indication: FLUID OVERLOAD
  6. ENALAPRIL [Concomitant]
     Indication: HYPERTENSION

REACTIONS (3)
  - Presyncope [Recovered/Resolved]
  - Bradycardia [Recovered/Resolved]
  - Hypotension [Recovered/Resolved]
